FAERS Safety Report 6245043-0 (Version None)
Quarter: 2009Q2

REPORT INFORMATION
  Report Type: 
  Country: None (occurrence: None)
  Receive Date: 20090623
  Receipt Date: 20090623
  Transmission Date: 20091009
  Serious: Yes (Other)
  Sender: FDA-Public Use
  Company Number: None

PATIENT
  Age: 58 Year
  Sex: Male
  Weight: 87.1 kg

DRUGS (7)
  1. IXABEPILONE [Suspect]
     Indication: PROSTATE CANCER
     Dosage: 73MG EVERY 3WEEKS IV
     Route: 042
     Dates: start: 20090505, end: 20090616
  2. IXABEPILONE [Suspect]
  3. ASPIRIN [Concomitant]
  4. VITAMIN [Concomitant]
  5. LOVAZA [Concomitant]
  6. COMPAZINE [Concomitant]
  7. TYLENOL (CAPLET) [Concomitant]

REACTIONS (2)
  - HEART RATE DECREASED [None]
  - PRESYNCOPE [None]
